FAERS Safety Report 4784565-6 (Version None)
Quarter: 2005Q3

REPORT INFORMATION
  Report Type: 
  Country: None (occurrence: None)
  Receive Date: 20050928
  Receipt Date: 20050909
  Transmission Date: 20060218
  Serious: Yes (Hospitalization)
  Sender: FDA-Public Use
  Company Number: US_0509121492

PATIENT
  Age: 58 Year
  Sex: Male
  Weight: 73 kg

DRUGS (16)
  1. PEMETREXED [Suspect]
     Indication: BLADDER CANCER
     Dosage: 500 MG/M2 OTHER
     Route: 050
     Dates: start: 20050818
  2. PEMETREXED [Suspect]
     Indication: MALIGNANT URINARY TRACT NEOPLASM
     Dosage: 500 MG/M2 OTHER
     Route: 050
     Dates: start: 20050818
  3. GEMCITABINE HYDROCHLORIDE-IV (GEMCITABINE) [Suspect]
     Indication: BLADDER CANCER
     Dosage: 1000 MG/M2 OTHER
     Route: 050
     Dates: start: 20050818
  4. GEMCITABINE HYDROCHLORIDE-IV (GEMCITABINE) [Suspect]
     Indication: MALIGNANT URINARY TRACT NEOPLASM
     Dosage: 1000 MG/M2 OTHER
     Route: 050
     Dates: start: 20050818
  5. CYMBALTA [Concomitant]
  6. VITAMIN B-12 [Concomitant]
  7. FOLIC ACID [Concomitant]
  8. WELLBUTRIN [Concomitant]
  9. COMPAZINE [Concomitant]
  10. TYLENOL (CAPLET) [Concomitant]
  11. NEURONTIN [Concomitant]
  12. MS CONTIN [Concomitant]
  13. MULTIPLE HERBALS [Concomitant]
  14. PERCOCET [Concomitant]
  15. NICODERM [Concomitant]
  16. BACTRIM DS [Concomitant]

REACTIONS (24)
  - ADENOVIRAL CONJUNCTIVITIS [None]
  - AGITATION [None]
  - BACTERIAL INFECTION [None]
  - BALANCE DISORDER [None]
  - CEREBRAL ISCHAEMIA [None]
  - COAGULOPATHY [None]
  - CONFUSIONAL STATE [None]
  - DIPLOPIA [None]
  - DIZZINESS [None]
  - DRUG HYPERSENSITIVITY [None]
  - EYE PAIN [None]
  - FALL [None]
  - GAIT DISTURBANCE [None]
  - HAEMOGLOBIN DECREASED [None]
  - HEADACHE [None]
  - NAUSEA [None]
  - NUCLEAR MAGNETIC RESONANCE IMAGING BRAIN ABNORMAL [None]
  - OCULAR HYPERAEMIA [None]
  - PLATELET COUNT DECREASED [None]
  - RASH PRURITIC [None]
  - SKIN EXFOLIATION [None]
  - VIRAL INFECTION [None]
  - VISION BLURRED [None]
  - WHITE BLOOD CELL COUNT DECREASED [None]
